FAERS Safety Report 9796055 (Version 2)
Quarter: 2014Q1

REPORT INFORMATION
  Report Type: Spontaneous
  Country: FR (occurrence: FR)
  Receive Date: 20140103
  Receipt Date: 20140107
  Transmission Date: 20141002
  Serious: Yes (Hospitalization)
  Sender: FDA-Public Use
  Company Number: FR-PFIZER INC-2013373668

PATIENT
  Age: 92 Year
  Sex: Female

DRUGS (12)
  1. XANAX [Suspect]
     Indication: ANXIETY
     Dosage: 0.25 MG, THREE TIMES DAILY
     Route: 048
     Dates: start: 20130525, end: 20130529
  2. SERESTA [Suspect]
     Indication: ANXIETY
     Dosage: 10 MG, 2 TO 3 TIMES PER DAY
     Route: 048
     Dates: start: 20130531, end: 20130606
  3. DAFALGAN [Concomitant]
     Indication: PAIN
     Dosage: 500 MG, 8 TIMES DAILY AS NEEDED
     Route: 048
  4. KARDEGIC [Concomitant]
     Dosage: 75 MG, ONCE DAILY
     Route: 048
  5. INEXIUM /01479302/ [Concomitant]
     Dosage: 20 MG, ONCE DAILY
     Route: 048
  6. VOGALENE [Concomitant]
     Dosage: 7.5 MG, ONCE DAILY AS NEEDED
     Route: 048
     Dates: start: 20130523, end: 20130524
  7. NEFOPAM [Concomitant]
     Indication: PAIN
     Dosage: 20 MG/ 2 ML, ONCE DAILY AS NEEDED
     Route: 041
     Dates: start: 20130523, end: 20130531
  8. SEROPLEX [Concomitant]
     Indication: DEPRESSION
     Dosage: 10 MG, ONCE A DAY
     Route: 048
     Dates: start: 20130524, end: 20130603
  9. COAPROVEL [Concomitant]
     Indication: HYPERTENSION
     Dosage: 150 MG / 12.5 MG, ONCE A DAY
     Route: 048
  10. LOVENOX [Concomitant]
     Dosage: 1 DF, DAILY
     Route: 058
  11. OXYNORM [Concomitant]
     Indication: PAIN
     Dosage: 5 MG, 1 TABLET 6 TIMES DAILY AS NEEDED
     Dates: start: 20130523, end: 20130523
  12. OXYCONTIN [Concomitant]
     Dosage: 5 MG, TWICE A DAY (1 TABLET IN THE MORNING AND IN THE EVENING)
     Dates: start: 20130523, end: 20130523

REACTIONS (2)
  - Somnolence [Recovered/Resolved]
  - Aggression [Recovered/Resolved]
